FAERS Safety Report 8246988-2 (Version None)
Quarter: 2012Q1

REPORT INFORMATION
  Report Type: 
  Country: None (occurrence: None)
  Receive Date: 20120330
  Receipt Date: 20120330
  Transmission Date: 20120608
  Serious: Yes (Death)
  Sender: FDA-Public Use
  Company Number: None

PATIENT
  Sex: Male
  Weight: 76.203 kg

DRUGS (1)
  1. PSEUDOEPHEDRINE HCL [Suspect]

REACTIONS (2)
  - SUDDEN DEATH [None]
  - CHEST PAIN [None]
